FAERS Safety Report 23410089 (Version 1)
Quarter: 2024Q1

REPORT INFORMATION
  Report Type: Spontaneous
  Country: US (occurrence: US)
  Receive Date: 20240117
  Receipt Date: 20240117
  Transmission Date: 20240409
  Serious: Yes (Other)
  Sender: FDA-Public Use
  Company Number: US-AMGEN-USASP2024007305

PATIENT
  Age: 4 Month
  Sex: Female

DRUGS (1)
  1. BEVACIZUMAB [Suspect]
     Active Substance: BEVACIZUMAB
     Indication: Retinopathy of prematurity
     Dosage: 0.625 MILLIGRAM

REACTIONS (7)
  - Retinopathy of prematurity [Unknown]
  - Serous retinal detachment [Recovered/Resolved]
  - Drug effective for unapproved indication [Unknown]
  - Visual impairment [Unknown]
  - Heterophoria [Unknown]
  - Therapeutic response shortened [Unknown]
  - Off label use [Unknown]
